FAERS Safety Report 16607709 (Version 3)
Quarter: 2019Q3

REPORT INFORMATION
  Report Type: Spontaneous
  Country: US (occurrence: US)
  Receive Date: 20190722
  Receipt Date: 20190731
  Transmission Date: 20191004
  Serious: No
  Sender: FDA-Public Use
  Company Number: US-ELI_LILLY_AND_COMPANY-US201907009753

PATIENT
  Sex: Female

DRUGS (3)
  1. HUMULIN N [Suspect]
     Active Substance: INSULIN HUMAN
     Indication: TYPE 1 DIABETES MELLITUS
     Dosage: UNK UNK, UNKNOWN
     Route: 065
  2. HUMALOG [Suspect]
     Active Substance: INSULIN LISPRO
     Dosage: 80 U, DAILY (75-80 UNITS)
     Route: 065
     Dates: start: 1999
  3. HUMALOG [Suspect]
     Active Substance: INSULIN LISPRO
     Indication: TYPE 1 DIABETES MELLITUS
     Dosage: 80 U, DAILY (75-80 UNITS)
     Route: 065
     Dates: start: 1999

REACTIONS (13)
  - Lip swelling [Recovering/Resolving]
  - Eye pruritus [Unknown]
  - Eye irritation [Unknown]
  - Dysphonia [Unknown]
  - Peripheral swelling [Recovering/Resolving]
  - Injection site rash [Recovering/Resolving]
  - Headache [Unknown]
  - Hypoglycaemia [Unknown]
  - Injection site swelling [Recovering/Resolving]
  - Paraesthesia oral [Recovering/Resolving]
  - Pain [Unknown]
  - Drug hypersensitivity [Unknown]
  - Pruritus [Recovering/Resolving]

NARRATIVE: CASE EVENT DATE: 1999
